FAERS Safety Report 10438854 (Version 2)
Quarter: 2014Q3

REPORT INFORMATION
  Report Type: Spontaneous
  Country: IT (occurrence: IT)
  Receive Date: 20140908
  Receipt Date: 20140912
  Transmission Date: 20150326
  Serious: Yes (Hospitalization)
  Sender: FDA-Public Use
  Company Number: PHHY2014IT109730

PATIENT
  Sex: Female

DRUGS (6)
  1. ALLOPURINOL. [Suspect]
     Active Substance: ALLOPURINOL
     Indication: HYPERURICAEMIA
     Dosage: 300 MG, QD
     Route: 048
     Dates: start: 20140725, end: 20140807
  2. KCL RETARD ZYMA [Concomitant]
  3. CLEXANE [Concomitant]
     Active Substance: ENOXAPARIN SODIUM
     Dosage: 4000 IU, UNK
     Route: 058
     Dates: start: 20140720, end: 20140806
  4. VOLIBRIS [Suspect]
     Active Substance: AMBRISENTAN
     Indication: PULMONARY HYPERTENSION
     Dosage: 5 MG, QD
     Route: 048
     Dates: start: 20140806, end: 20140811
  5. ARIXTRA [Suspect]
     Active Substance: FONDAPARINUX SODIUM
     Dosage: 1 DF, QD
     Route: 058
     Dates: start: 20140806, end: 20140812
  6. DOBUTAMIN [Concomitant]
     Indication: CIRCULATORY COLLAPSE
     Dosage: 2.5 DF, UNK

REACTIONS (3)
  - Lichenoid keratosis [Recovering/Resolving]
  - Leukopenia [Recovering/Resolving]
  - Thrombocytopenia [Recovering/Resolving]

NARRATIVE: CASE EVENT DATE: 20140807
